FAERS Safety Report 18103882 (Version 1)
Quarter: 2020Q3

REPORT INFORMATION
  Report Type: Spontaneous
  Country: FR (occurrence: FR)
  Receive Date: 20200803
  Receipt Date: 20200803
  Transmission Date: 20201103
  Serious: Yes (Other)
  Sender: FDA-Public Use
  Company Number: FR-TEVA-2020-FR-1808113

PATIENT
  Age: 44 Year
  Sex: Male
  Weight: 86 kg

DRUGS (22)
  1. LEVOFOLINATE DE CALCIUM ZENTIVA [Concomitant]
     Active Substance: LEVOLEUCOVORIN CALCIUM
  2. VALIUM [Concomitant]
     Active Substance: DIAZEPAM
  3. DOXORUBICINE [Suspect]
     Active Substance: DOXORUBICIN
     Indication: HIGH GRADE B-CELL LYMPHOMA BURKITT-LIKE LYMPHOMA STAGE II
     Route: 041
     Dates: start: 20180225, end: 20180314
  4. CYTARABINE. [Suspect]
     Active Substance: CYTARABINE
     Indication: HIGH GRADE B-CELL LYMPHOMA BURKITT-LIKE LYMPHOMA STAGE II
     Route: 037
     Dates: start: 20180225, end: 20180318
  5. METHYLPREDNISOLONE MYLAN [Concomitant]
     Active Substance: METHYLPREDNISOLONE
  6. LOVENOX [Concomitant]
     Active Substance: ENOXAPARIN SODIUM
  7. ACETATE D^HYDROCORTISONE [Concomitant]
  8. METHOTREXATE BIODIM 25 MG/ML, SOLUTION INJECTABLE [Suspect]
     Active Substance: METHOTREXATE
     Indication: HIGH GRADE B-CELL LYMPHOMA BURKITT-LIKE LYMPHOMA STAGE II
     Route: 037
     Dates: start: 20180225, end: 20180318
  9. LANSOPRAZOLE MYLAN 30 MG, COMPRIME ORODISPERSIBLE [Concomitant]
  10. POLARAMINE [Concomitant]
     Active Substance: DEXCHLORPHENIRAMINE MALEATE
  11. IMOVANE [Concomitant]
     Active Substance: ZOPICLONE
  12. ALPRAZOLAM MYLAN 0,50 MG, COMPRIME SECABLE [Concomitant]
  13. CORTANCYL 20 MG, COMPRIME SECABLE [Concomitant]
     Active Substance: PREDNISONE
  14. METHOTREXATE MYLAN [Suspect]
     Active Substance: METHOTREXATE SODIUM
     Indication: HIGH GRADE B-CELL LYMPHOMA BURKITT-LIKE LYMPHOMA STAGE II
     Route: 041
     Dates: start: 20180224, end: 20180313
  15. MABTHERA [Suspect]
     Active Substance: RITUXIMAB
     Indication: HIGH GRADE B-CELL LYMPHOMA BURKITT-LIKE LYMPHOMA STAGE II
     Route: 041
     Dates: start: 20180223, end: 20180318
  16. PARACETAMOL B BRAUN 10 MG/ML, SOLUTION POUR PERFUSION [Concomitant]
     Active Substance: ACETAMINOPHEN
  17. LEDERFOLINE 25 MG, COMPRIME [Concomitant]
     Active Substance: LEUCOVORIN CALCIUM
  18. PYLERA [Concomitant]
     Active Substance: BISMUTH SUBCITRATE POTASSIUM\METRONIDAZOLE\TETRACYCLINE HYDROCHLORIDE
  19. ZARZIO [Concomitant]
     Active Substance: FILGRASTIM
  20. ENDOXAN [Suspect]
     Active Substance: CYCLOPHOSPHAMIDE
     Indication: HIGH GRADE B-CELL LYMPHOMA BURKITT-LIKE LYMPHOMA STAGE II
     Route: 041
     Dates: start: 20180225, end: 20180316
  21. VINCRISTINE HOSPIRA 2 MG/2 ML, SOLUTION INJECTABLE [Suspect]
     Active Substance: VINCRISTINE SULFATE
     Indication: HIGH GRADE B-CELL LYMPHOMA BURKITT-LIKE LYMPHOMA STAGE II
     Route: 041
     Dates: start: 20180224, end: 20180318
  22. VALACICLOVIR ARROW 500 MG, COMPRIME PELLICULE [Concomitant]

REACTIONS (1)
  - Febrile bone marrow aplasia [Recovered/Resolved]

NARRATIVE: CASE EVENT DATE: 20180306
